FAERS Safety Report 16311335 (Version 2)
Quarter: 2020Q4

REPORT INFORMATION
  Report Type: Spontaneous
  Country: US (occurrence: US)
  Receive Date: 20190514
  Receipt Date: 20201222
  Transmission Date: 20210113
  Serious: Yes (Hospitalization, Other)
  Sender: FDA-Public Use
  Company Number: US-ASTRAZENECA-2019SE67116

PATIENT
  Age: 51 Year
  Sex: Female
  Weight: 53.5 kg

DRUGS (75)
  1. NEXIUM [Suspect]
     Active Substance: ESOMEPRAZOLE MAGNESIUM
     Route: 048
     Dates: start: 200609, end: 200904
  2. PRILOSEC [Suspect]
     Active Substance: OMEPRAZOLE MAGNESIUM
     Indication: GASTROOESOPHAGEAL REFLUX DISEASE
     Dosage: GENERIC
     Route: 048
     Dates: start: 20131108, end: 20170327
  3. PRILOSEC OTC [Suspect]
     Active Substance: OMEPRAZOLE MAGNESIUM
     Indication: GASTROOESOPHAGEAL REFLUX DISEASE
     Route: 048
     Dates: start: 200609, end: 200904
  4. SERTRALINE [Concomitant]
     Active Substance: SERTRALINE HYDROCHLORIDE
     Indication: AFFECTIVE DISORDER
     Dates: start: 20170109, end: 20170324
  5. VITAMIN B [Concomitant]
     Active Substance: VITAMIN B
     Dates: start: 2009, end: 2010
  6. CRANBERRY. [Concomitant]
     Active Substance: CRANBERRY
     Dates: start: 2009, end: 2010
  7. FLAXSEED [Concomitant]
     Active Substance: FLAX SEED
     Dates: start: 2009, end: 2010
  8. CALCIUM CARBONATE. [Concomitant]
     Active Substance: CALCIUM CARBONATE
  9. BENICAR [Concomitant]
     Active Substance: OLMESARTAN MEDOXOMIL
  10. PAROXETINE. [Concomitant]
     Active Substance: PAROXETINE
  11. DIGOXIN. [Concomitant]
     Active Substance: DIGOXIN
  12. PROMETHAZINE [Concomitant]
     Active Substance: PROMETHAZINE HYDROCHLORIDE
     Indication: VIRAL INFECTION
     Dates: start: 20160322, end: 20160929
  13. POTASSIUM CHLORIDE. [Concomitant]
     Active Substance: POTASSIUM CHLORIDE
  14. METHOCARBAMOL. [Concomitant]
     Active Substance: METHOCARBAMOL
  15. LISINOPRIL. [Concomitant]
     Active Substance: LISINOPRIL
  16. GLIPIZIDE. [Concomitant]
     Active Substance: GLIPIZIDE
  17. DIPHENHYDRAMINE. [Concomitant]
     Active Substance: DIPHENHYDRAMINE
  18. SERTRALINE [Concomitant]
     Active Substance: SERTRALINE HYDROCHLORIDE
     Indication: AFFECTIVE DISORDER
     Dates: start: 20120929, end: 20121205
  19. SERTRALINE [Concomitant]
     Active Substance: SERTRALINE HYDROCHLORIDE
     Indication: AFFECTIVE DISORDER
     Dates: start: 20130501, end: 20130820
  20. LOVASTATIN. [Concomitant]
     Active Substance: LOVASTATIN
  21. ULORIC [Concomitant]
     Active Substance: FEBUXOSTAT
  22. DILAUDID [Concomitant]
     Active Substance: HYDROMORPHONE HYDROCHLORIDE
  23. PRILOSEC OTC [Suspect]
     Active Substance: OMEPRAZOLE MAGNESIUM
     Indication: GASTROOESOPHAGEAL REFLUX DISEASE
     Route: 048
     Dates: start: 20060923, end: 20090416
  24. SERTRALINE [Concomitant]
     Active Substance: SERTRALINE HYDROCHLORIDE
     Indication: AFFECTIVE DISORDER
     Dates: start: 20130107, end: 20130404
  25. TORSEMIDE. [Concomitant]
     Active Substance: TORSEMIDE
     Indication: HYPERTENSION
     Dates: start: 20121103, end: 20130705
  26. NASACORT [Concomitant]
     Active Substance: TRIAMCINOLONE ACETONIDE
  27. LOTEMAX [Concomitant]
     Active Substance: LOTEPREDNOL ETABONATE
  28. INSULIN [Concomitant]
     Active Substance: INSULIN NOS
  29. KETOROLAC [Concomitant]
     Active Substance: KETOROLAC TROMETHAMINE
  30. PAXIL [Concomitant]
     Active Substance: PAROXETINE HYDROCHLORIDE
  31. SERTRALINE [Concomitant]
     Active Substance: SERTRALINE HYDROCHLORIDE
     Indication: AFFECTIVE DISORDER
     Dates: start: 20160412, end: 20160704
  32. MILK THISTLE [Concomitant]
     Active Substance: DIETARY SUPPLEMENT\HERBALS\MILK THISTLE
     Dates: start: 2009, end: 2010
  33. METHADONE [Concomitant]
     Active Substance: METHADONE HYDROCHLORIDE
  34. ALPRAZOLAM. [Concomitant]
     Active Substance: ALPRAZOLAM
  35. AZITHROMYCIN ANHYDROUS. [Concomitant]
     Active Substance: AZITHROMYCIN ANHYDROUS
  36. CLONAZEPAM. [Concomitant]
     Active Substance: CLONAZEPAM
  37. CEPHALEXIN. [Concomitant]
     Active Substance: CEPHALEXIN
  38. ATENOLOL. [Concomitant]
     Active Substance: ATENOLOL
  39. ZOFRAN [Concomitant]
     Active Substance: ONDANSETRON HYDROCHLORIDE
  40. MILK OF MAGNESIA [Concomitant]
     Active Substance: MAGNESIUM HYDROXIDE
  41. PRILOSEC [Suspect]
     Active Substance: OMEPRAZOLE MAGNESIUM
     Indication: GASTROOESOPHAGEAL REFLUX DISEASE
     Route: 048
     Dates: start: 200609, end: 200904
  42. PRILOSEC [Suspect]
     Active Substance: OMEPRAZOLE MAGNESIUM
     Indication: GASTROOESOPHAGEAL REFLUX DISEASE
     Route: 048
     Dates: start: 2000
  43. PROTONIX [Suspect]
     Active Substance: PANTOPRAZOLE SODIUM
     Route: 065
     Dates: start: 200609, end: 200904
  44. METHADONE [Concomitant]
     Active Substance: METHADONE HYDROCHLORIDE
     Indication: PAIN
     Dates: start: 20121015, end: 20140411
  45. PROMETHAZINE [Concomitant]
     Active Substance: PROMETHAZINE HYDROCHLORIDE
     Indication: VIRAL INFECTION
     Dates: start: 20111123, end: 20140901
  46. LIPITOR [Concomitant]
     Active Substance: ATORVASTATIN CALCIUM
     Indication: BLOOD CHOLESTEROL ABNORMAL
     Dates: start: 20061219, end: 20080611
  47. DOCUSATE [Concomitant]
     Active Substance: DOCUSATE
     Indication: CONSTIPATION
     Dates: start: 20060923, end: 20090612
  48. RANITIDINE. [Concomitant]
     Active Substance: RANITIDINE
     Dates: start: 20121211, end: 20131013
  49. LAMICTAL [Concomitant]
     Active Substance: LAMOTRIGINE
  50. PATANOL [Concomitant]
     Active Substance: OLOPATADINE HYDROCHLORIDE
  51. ABILIFY [Concomitant]
     Active Substance: ARIPIPRAZOLE
  52. HYDROCODONE BITARTRATE AND ACETAMINOPHEN [Concomitant]
     Active Substance: ACETAMINOPHEN\HYDROCODONE BITARTRATE
  53. LOVAZA [Concomitant]
     Active Substance: OMEGA-3-ACID ETHYL ESTERS
  54. OXYCODONE [Concomitant]
     Active Substance: OXYCODONE
  55. SERTRALINE [Concomitant]
     Active Substance: SERTRALINE HYDROCHLORIDE
     Indication: AFFECTIVE DISORDER
     Dates: start: 20160804, end: 20161221
  56. RANITIDINE. [Concomitant]
     Active Substance: RANITIDINE
     Dates: start: 20090612, end: 20100510
  57. FOSAMAX [Concomitant]
     Active Substance: ALENDRONATE SODIUM
  58. STRATTERA [Concomitant]
     Active Substance: ATOMOXETINE HYDROCHLORIDE
  59. SEROQUEL [Concomitant]
     Active Substance: QUETIAPINE FUMARATE
  60. OXCARBAZEPINE. [Concomitant]
     Active Substance: OXCARBAZEPINE
  61. CRESTOR [Concomitant]
     Active Substance: ROSUVASTATIN CALCIUM
  62. IBANDRONATE [Concomitant]
     Active Substance: IBANDRONATE SODIUM
  63. DOCUSATE SOD [Concomitant]
  64. MINOCYCLINE HCL [Concomitant]
     Active Substance: MINOCYCLINE HYDROCHLORIDE
  65. FISH OIL [Concomitant]
     Active Substance: FISH OIL
  66. IPRATROPIUM [Concomitant]
     Active Substance: IPRATROPIUM
  67. NICOTINE. [Concomitant]
     Active Substance: NICOTINE
  68. DEXTROSE. [Concomitant]
     Active Substance: DEXTROSE
  69. GARLIC. [Concomitant]
     Active Substance: GARLIC
     Dates: start: 2009, end: 2010
  70. SENNA [Concomitant]
     Active Substance: SENNA LEAF\SENNOSIDES\SENNOSIDES A AND B
  71. ACTONEL [Concomitant]
     Active Substance: RISEDRONATE SODIUM
  72. DOXYCYCLINE HYCLATE. [Concomitant]
     Active Substance: DOXYCYCLINE HYCLATE
  73. CAPSAICIN. [Concomitant]
     Active Substance: CAPSAICIN
  74. NALOXONE [Concomitant]
     Active Substance: NALOXONE
  75. IRON [Concomitant]
     Active Substance: IRON

REACTIONS (4)
  - Gastrooesophageal reflux disease [Not Recovered/Not Resolved]
  - Chronic kidney disease [Not Recovered/Not Resolved]
  - Renal failure [Unknown]
  - Acute kidney injury [Unknown]

NARRATIVE: CASE EVENT DATE: 2008
